FAERS Safety Report 13945070 (Version 1)
Quarter: 2017Q3

REPORT INFORMATION
  Report Type: Spontaneous
  Country: US (occurrence: US)
  Receive Date: 20170907
  Receipt Date: 20170907
  Transmission Date: 20171128
  Serious: No
  Sender: FDA-Public Use
  Company Number: US-SHIRE-US201720458

PATIENT
  Sex: Male

DRUGS (1)
  1. XIIDRA [Suspect]
     Active Substance: LIFITEGRAST
     Indication: PRODUCT USED FOR UNKNOWN INDICATION
     Dosage: UNK , UNK
     Route: 047

REACTIONS (5)
  - Eye discharge [Unknown]
  - Dry eye [Unknown]
  - Instillation site reaction [Unknown]
  - Visual impairment [Unknown]
  - Ocular discomfort [Unknown]
